FAERS Safety Report 4728227-X (Version None)
Quarter: 2005Q3

REPORT INFORMATION
  Report Type: 
  Country: None (occurrence: None)
  Receive Date: 20050729
  Receipt Date: 20050218
  Transmission Date: 20060218
  Serious: No
  Sender: FDA-Public Use
  Company Number: US-BRISTOL-MYERS SQUIBB COMPANY-12912598

PATIENT
  Age: 38 Year
  Weight: 83 kg

DRUGS (4)
  1. BLENOXANE [Suspect]
     Indication: HODGKIN'S DISEASE
     Route: 041
     Dates: start: 20050211, end: 20050211
  2. ADRIAMYCIN PFS [Suspect]
     Indication: HODGKIN'S DISEASE
     Route: 041
     Dates: start: 20050211, end: 20050211
  3. VINBLASTINE [Suspect]
     Indication: HODGKIN'S DISEASE
     Route: 041
     Dates: start: 20050211, end: 20050211
  4. DACARBAZINE [Suspect]
     Indication: HODGKIN'S DISEASE
     Route: 041
     Dates: start: 20050211, end: 20050211

REACTIONS (1)
  - NEUTROPHIL COUNT DECREASED [None]
